FAERS Safety Report 25566842 (Version 1)
Quarter: 2025Q3

REPORT INFORMATION
  Report Type: Spontaneous
  Country: CA (occurrence: CA)
  Receive Date: 20250716
  Receipt Date: 20250716
  Transmission Date: 20251021
  Serious: Yes (Other)
  Sender: PFIZER
  Company Number: CA-PFIZER INC-202500142429

PATIENT
  Age: 55 Year
  Sex: Female

DRUGS (4)
  1. CIBINQO [Suspect]
     Active Substance: ABROCITINIB
     Indication: Dermatitis atopic
     Dosage: 100 MG, 1X/DAY
     Route: 048
     Dates: start: 20250112
  2. BETADERM [Concomitant]
     Active Substance: BETAMETHASONE VALERATE
  3. CLOBETASOL [Concomitant]
     Active Substance: CLOBETASOL
  4. MOMETASONE [Concomitant]
     Active Substance: MOMETASONE

REACTIONS (4)
  - Malignant melanoma [Unknown]
  - Rash [Unknown]
  - Oral mucosal eruption [Unknown]
  - Oral pain [Unknown]

NARRATIVE: CASE EVENT DATE: 20250401
